FAERS Safety Report 12664762 (Version 1)
Quarter: 2016Q3

REPORT INFORMATION
  Report Type: Spontaneous
  Country: AU (occurrence: AU)
  Receive Date: 20160818
  Receipt Date: 20160818
  Transmission Date: 20161109
  Serious: Yes (Other)
  Sender: FDA-Public Use
  Company Number: PHHY2016AU111301

PATIENT
  Sex: Male

DRUGS (3)
  1. CLOZARIL [Suspect]
     Active Substance: CLOZAPINE
     Indication: PRODUCT USED FOR UNKNOWN INDICATION
     Route: 065
  2. HALOPERIDOL. [Suspect]
     Active Substance: HALOPERIDOL
     Indication: PRODUCT USED FOR UNKNOWN INDICATION
     Route: 065
  3. OLANZAPINE. [Suspect]
     Active Substance: OLANZAPINE
     Indication: PRODUCT USED FOR UNKNOWN INDICATION
     Route: 065

REACTIONS (15)
  - Blood bilirubin increased [Unknown]
  - Cardiac disorder [Unknown]
  - Psychiatric decompensation [Unknown]
  - Bilirubin conjugated increased [Unknown]
  - Tachycardia [Unknown]
  - Aspartate aminotransferase increased [Unknown]
  - Blood glucose increased [Unknown]
  - Blood sodium decreased [Unknown]
  - Globulins decreased [Unknown]
  - Blood uric acid increased [Unknown]
  - Blood creatine decreased [Unknown]
  - Cardiomyopathy [Unknown]
  - Blood bicarbonate decreased [Unknown]
  - Echocardiogram abnormal [Unknown]
  - Blood lactate dehydrogenase increased [Unknown]
